FAERS Safety Report 10021773 (Version 1)
Quarter: 2014Q1

REPORT INFORMATION
  Report Type: Spontaneous
  Country: US (occurrence: None)
  Receive Date: 20140313
  Receipt Date: 20140313
  Transmission Date: 20141002
  Serious: Yes (Other)
  Sender: FDA-Public Use
  Company Number: 201403026

PATIENT
  Age: 70 Year
  Sex: Male

DRUGS (11)
  1. TESTIM [Suspect]
     Indication: BLOOD TESTOSTERONE DECREASED
     Route: 062
  2. ZOLOFT(SERTRALINE HYDROCHLORIDE) [Concomitant]
  3. SIMVASTATIN(SIMVASTATIN) [Concomitant]
  4. METOPROLOL(METOPROLOL) [Concomitant]
  5. BENAZEPRIL(BENAZEPRIL) [Concomitant]
  6. TRIAMTERENE(TRIAMTERENE) [Concomitant]
  7. AMLODIPINE(AMLODIPINE) [Concomitant]
  8. ETODOLAC(ETODOLAC) [Concomitant]
  9. DOXAZOSIN(DOXAZOSIN) [Concomitant]
  10. CITALOPRAM(CITALOPRAM) [Concomitant]
  11. VICODIN(PARACETAMOL, HYDROCODONE BITARTRATE) [Concomitant]

REACTIONS (2)
  - Chronic lymphocytic leukaemia [None]
  - White blood cell count increased [None]
